FAERS Safety Report 19017670 (Version 1)
Quarter: 2021Q1

REPORT INFORMATION
  Report Type: Spontaneous
  Country: US (occurrence: US)
  Receive Date: 20210316
  Receipt Date: 20210316
  Transmission Date: 20210420
  Serious: Yes (Death)
  Sender: FDA-Public Use
  Company Number: None

PATIENT
  Age: 71 Year
  Sex: Male
  Weight: 85 kg

DRUGS (1)
  1. BREXUCABTAGENE AUTOLEUCEL. [Suspect]
     Active Substance: BREXUCABTAGENE AUTOLEUCEL
     Indication: MANTLE CELL LYMPHOMA
     Dosage: ?          OTHER FREQUENCY:ONCE;?
     Route: 041
     Dates: start: 20201222, end: 20201222

REACTIONS (7)
  - Immunosuppression [None]
  - Mantle cell lymphoma recurrent [None]
  - Alveolar rhabdomyosarcoma [None]
  - Pleural effusion [None]
  - Cytopenia [None]
  - Coagulopathy [None]
  - Dyspnoea [None]

NARRATIVE: CASE EVENT DATE: 20210225
